FAERS Safety Report 13409654 (Version 3)
Quarter: 2022Q3

REPORT INFORMATION
  Report Type: Spontaneous
  Country: US (occurrence: US)
  Receive Date: 20170406
  Receipt Date: 20220704
  Transmission Date: 20221027
  Serious: No
  Sender: FDA-Public Use
  Company Number: US-JNJFOC-20170206140

PATIENT
  Age: 16 Year
  Sex: Male

DRUGS (9)
  1. RISPERDAL [Suspect]
     Active Substance: RISPERIDONE
     Indication: Aggression
     Dosage: VARYING DOSES OF 0.25 MG TO 4 MG
     Route: 048
     Dates: start: 20110401, end: 20131114
  2. RISPERDAL [Suspect]
     Active Substance: RISPERIDONE
     Indication: Affective disorder
     Route: 048
     Dates: start: 20150305, end: 20150403
  3. RISPERDAL [Suspect]
     Active Substance: RISPERIDONE
     Indication: Craniocerebral injury
  4. RISPERDAL [Suspect]
     Active Substance: RISPERIDONE
     Indication: Psychotic disorder
  5. RISPERDAL [Suspect]
     Active Substance: RISPERIDONE
     Indication: Impulsive behaviour
  6. RISPERIDONE [Suspect]
     Active Substance: RISPERIDONE
     Indication: Disturbance in social behaviour
     Dosage: VARYING DOSES OF 0.25, 0.5, 01, 02 AND 04 MG AT VARYING FREQUENCIES
     Route: 048
     Dates: start: 20110331, end: 20150403
  7. RISPERIDONE [Suspect]
     Active Substance: RISPERIDONE
     Indication: Aggression
     Route: 048
     Dates: start: 20110401, end: 20131114
  8. RISPERIDONE [Suspect]
     Active Substance: RISPERIDONE
     Route: 048
     Dates: start: 20150305, end: 20150403
  9. RISPERIDONE [Suspect]
     Active Substance: RISPERIDONE
     Indication: Product used for unknown indication
     Route: 065

REACTIONS (9)
  - Overweight [Recovering/Resolving]
  - Emotional disorder [Unknown]
  - Irritability [Unknown]
  - Blood cholesterol increased [Unknown]
  - Initial insomnia [Recovering/Resolving]
  - Gynaecomastia [Unknown]
  - Increased appetite [Unknown]
  - Blood prolactin increased [Unknown]
  - Incorrect dose administered [Unknown]

NARRATIVE: CASE EVENT DATE: 20130501
